FAERS Safety Report 17058053 (Version 1)
Quarter: 2019Q4

REPORT INFORMATION
  Report Type: Spontaneous
  Country: CA (occurrence: CA)
  Receive Date: 20191121
  Receipt Date: 20191121
  Transmission Date: 20200122
  Serious: Yes (Other)
  Sender: FDA-Public Use
  Company Number: CA-TEVA-2019-CA-1138868

PATIENT
  Sex: Female

DRUGS (2)
  1. TRAJENTA [Suspect]
     Active Substance: LINAGLIPTIN
     Indication: PRODUCT USED FOR UNKNOWN INDICATION
     Route: 065
  2. PREDNISONE. [Suspect]
     Active Substance: PREDNISONE
     Indication: PRODUCT USED FOR UNKNOWN INDICATION
     Route: 065

REACTIONS (4)
  - Nightmare [Recovered/Resolved]
  - Renal transplant [Recovered/Resolved]
  - Blood glucose increased [Recovered/Resolved]
  - Incorrect product dosage form administered [Recovered/Resolved]
